FAERS Safety Report 4699571-X (Version None)
Quarter: 2005Q2

REPORT INFORMATION
  Report Type: 
  Country: None (occurrence: None)
  Receive Date: 20050624
  Receipt Date: 20050617
  Transmission Date: 20051028
  Serious: Yes (Hospitalization)
  Sender: FDA-Public Use
  Company Number: 2005CG01128

PATIENT
  Age: 70 Year
  Sex: Male
  Weight: 103 kg

DRUGS (6)
  1. IRESSA [Suspect]
     Route: 048
  2. OMEPRAZOLE [Suspect]
     Route: 048
  3. RAMIPRIL [Suspect]
     Route: 048
  4. LASIX [Suspect]
  5. EPREX [Suspect]
  6. SOPROL [Suspect]
     Route: 048

REACTIONS (2)
  - LEUKOCYTOCLASTIC VASCULITIS [None]
  - PURPURA [None]
